FAERS Safety Report 5895101-5 (Version None)
Quarter: 2008Q3

REPORT INFORMATION
  Report Type: 
  Country: None (occurrence: None)
  Receive Date: 20080924
  Receipt Date: 20080911
  Transmission Date: 20090109
  Serious: Yes (Hospitalization)
  Sender: FDA-Public Use
  Company Number: US-PFIZER INC-2008066795

PATIENT
  Sex: Male

DRUGS (2)
  1. DEPO-MEDROL [Suspect]
     Indication: BURSITIS
     Route: 030
     Dates: start: 20080623, end: 20080623
  2. XYLOCAINE [Suspect]
     Indication: BURSITIS
     Route: 030
     Dates: start: 20080623, end: 20080623

REACTIONS (1)
  - CELLULITIS [None]
